FAERS Safety Report 5869859-5 (Version None)
Quarter: 2008Q3

REPORT INFORMATION
  Report Type: 
  Country: None (occurrence: None)
  Receive Date: 20080902
  Receipt Date: 20080815
  Transmission Date: 20090109
  Serious: Yes (Other)
  Sender: FDA-Public Use
  Company Number: 430005L08USA

PATIENT
  Age: 36 Year
  Sex: Female

DRUGS (7)
  1. MITOXANTRONE HYDROCHLORIDE [Suspect]
     Indication: B-CELL LYMPHOMA STAGE IV
  2. PACLITAXEL [Suspect]
     Indication: BREAST CANCER METASTATIC
     Dosage: 1 IN 3 WEEKS
  3. DOXORUBICIN HCL [Concomitant]
  4. RITUXIMAB [Concomitant]
  5. CYCLOPHOSPHAMIDE [Concomitant]
  6. VINCRISTINE /00078801/ [Concomitant]
  7. PREDNISONE /00044701/ [Concomitant]

REACTIONS (18)
  - ANAEMIA [None]
  - BLOOD LACTATE DEHYDROGENASE INCREASED [None]
  - DIFFUSE LARGE B-CELL LYMPHOMA STAGE IV [None]
  - DRUG INTOLERANCE [None]
  - DRUG PRESCRIBING ERROR [None]
  - DRUG TOXICITY [None]
  - EJECTION FRACTION DECREASED [None]
  - FATIGUE [None]
  - GAIT DISTURBANCE [None]
  - HYPOAESTHESIA [None]
  - HYPOREFLEXIA [None]
  - LYMPHADENOPATHY [None]
  - MUSCULAR WEAKNESS [None]
  - NAIL BED INFLAMMATION [None]
  - NEUROPATHY PERIPHERAL [None]
  - PARAESTHESIA [None]
  - SKIN HYPERPIGMENTATION [None]
  - SPLEEN DISORDER [None]
